FAERS Safety Report 8701788 (Version 2)
Quarter: 2012Q4

REPORT INFORMATION
  Report Type: 
  Country: JP (occurrence: JP)
  Receive Date: 20120803
  Receipt Date: 20121203
  Transmission Date: 20130627
  Serious: Yes (Death)
  Sender: FDA-Public Use
  Company Number: PHHY2012JP066591

PATIENT
  Sex: Female

DRUGS (2)
  1. EXELON PATCH [Suspect]
     Indication: DEMENTIA ALZHEIMER^S TYPE
     Dosage: 13.5 mg, daily
     Route: 062
     Dates: start: 20120223
  2. RISPERDAL [Concomitant]
     Route: 048

REACTIONS (2)
  - Poriomania [Fatal]
  - Hypothermia [Fatal]
